FAERS Safety Report 6398492-4 (Version None)
Quarter: 2009Q4

REPORT INFORMATION
  Report Type: 
  Country: None (occurrence: None)
  Receive Date: 20091013
  Receipt Date: 20091009
  Transmission Date: 20100525
  Serious: Yes (Other)
  Sender: FDA-Public Use
  Company Number: B0597370A

PATIENT
  Age: 13 Year
  Sex: Male

DRUGS (1)
  1. AVAMYS [Suspect]
     Route: 065
     Dates: start: 20090701, end: 20090701

REACTIONS (1)
  - ANGIOEDEMA [None]
